FAERS Safety Report 4661177-6 (Version None)
Quarter: 2005Q2

REPORT INFORMATION
  Report Type: 
  Country: None (occurrence: None)
  Receive Date: 20050425
  Receipt Date: 20041122
  Transmission Date: 20051028
  Serious: Yes (Hospitalization)
  Sender: FDA-Public Use
  Company Number: US099598

PATIENT
  Age: 41 Year
  Sex: Female
  Weight: 41.8 kg

DRUGS (13)
  1. SENSIPAR [Suspect]
     Indication: HYPERPARATHYROIDISM SECONDARY
     Dosage: 30 MG, 2 IN 1 DAYS, PO
     Route: 048
     Dates: start: 20041101
  2. SODIUM FERRIC GLUCONATE COMPLEX [Concomitant]
  3. SODIUM BICARBONATE [Concomitant]
  4. TUMS [Concomitant]
  5. ESTROGENS CONJUGATED [Concomitant]
  6. PHOSLO [Concomitant]
  7. MIRALAX [Concomitant]
  8. ASPIRIN [Concomitant]
  9. GLIBENCLAMIDE [Concomitant]
  10. CLONIDINE [Concomitant]
  11. SIMVASTATIN [Concomitant]
  12. ESOMEPRAZOLE MAGNESIUM [Concomitant]
  13. FLUTICASONE/SALMETEROL [Concomitant]

REACTIONS (5)
  - CHEST PAIN [None]
  - DYSPNOEA [None]
  - MUSCLE SPASMS [None]
  - NAUSEA [None]
  - VOMITING [None]
